FAERS Safety Report 7527538-2 (Version None)
Quarter: 2011Q2

REPORT INFORMATION
  Report Type: 
  Country: None (occurrence: None)
  Receive Date: 20110607
  Receipt Date: 20110531
  Transmission Date: 20111010
  Serious: No
  Sender: FDA-Public Use
  Company Number: US-PFIZER INC-2011117626

PATIENT
  Sex: Female
  Weight: 80.726 kg

DRUGS (4)
  1. LIPITOR [Concomitant]
     Indication: BLOOD CHOLESTEROL INCREASED
     Dosage: 20 MG, UNK
  2. ACETYLSALICYLIC ACID [Concomitant]
     Indication: THROMBOCYTOSIS
     Dosage: 81 MG, UNK
  3. AGRYLIN [Concomitant]
     Dosage: UNK
  4. NORVASC [Suspect]
     Indication: HYPERTENSION
     Dosage: 5 MG, DAILY
     Route: 048
     Dates: start: 20110524

REACTIONS (1)
  - OEDEMA PERIPHERAL [None]
